FAERS Safety Report 5312757-6 (Version None)
Quarter: 2007Q2

REPORT INFORMATION
  Report Type: 
  Country: None (occurrence: None)
  Receive Date: 20070430
  Receipt Date: 20070423
  Transmission Date: 20071010
  Serious: Yes (Congenital Anomaly)
  Sender: FDA-Public Use
  Company Number: US-ROXANE LABORATORIES, INC-2007-DE-02329GD

PATIENT
  Sex: Male
  Weight: 2.9 kg

DRUGS (5)
  1. TRANXENE [Suspect]
     Route: 015
  2. CHLORPROMAZINE HCL [Suspect]
     Route: 015
  3. RISPERIDONE [Suspect]
     Route: 015
  4. TROPATEPINE [Suspect]
     Route: 015
  5. BUPRENORPHINE HCL [Suspect]
     Route: 015

REACTIONS (3)
  - ANOMALY OF EXTERNAL EAR CONGENITAL [None]
  - DYSMORPHISM [None]
  - OESOPHAGEAL ATRESIA [None]
